FAERS Safety Report 8590216-5 (Version None)
Quarter: 2012Q3

REPORT INFORMATION
  Report Type: 
  Country: None (occurrence: None)
  Receive Date: 20120813
  Receipt Date: 20120802
  Transmission Date: 20120928
  Serious: Yes (Hospitalization, Other)
  Sender: FDA-Public Use
  Company Number: US-009507513-1004USA01671

PATIENT

DRUGS (8)
  1. FOSAMAX [Suspect]
     Indication: OSTEOPOROSIS
     Dosage: 10 MG, QD
     Route: 048
     Dates: start: 19980101, end: 20010101
  2. SIMVASTATIN [Concomitant]
     Route: 048
  3. FOSAMAX [Suspect]
     Indication: OSTEOPENIA
     Dosage: 70 MG, QW
     Route: 048
     Dates: start: 20010101, end: 20060801
  4. BONIVA [Suspect]
     Indication: OSTEOPENIA
  5. BLOCADREN [Concomitant]
     Route: 048
  6. ESTROGENS (UNSPECIFIED) [Concomitant]
  7. FOSAMAX [Suspect]
     Dosage: UNK
     Route: 048
     Dates: start: 19980101, end: 20070101
  8. BONIVA [Suspect]
     Indication: OSTEOPOROSIS
     Dosage: UNK
     Dates: start: 20070101, end: 20100801

REACTIONS (9)
  - BALANCE DISORDER [None]
  - PAIN [None]
  - GAIT DISTURBANCE [None]
  - FRACTURE NONUNION [None]
  - FEMUR FRACTURE [None]
  - FALL [None]
  - MOBILITY DECREASED [None]
  - LOW TURNOVER OSTEOPATHY [None]
  - ASTHENIA [None]
